FAERS Safety Report 12998332 (Version 1)
Quarter: 2016Q4

REPORT INFORMATION
  Report Type: Spontaneous
  Country: JP (occurrence: JP)
  Receive Date: 20161205
  Receipt Date: 20161205
  Transmission Date: 20170207
  Serious: Yes (Other)
  Sender: FDA-Public Use
  Company Number: JP-EISAI MEDICAL RESEARCH-EC-2016-022918

PATIENT
  Age: 57 Year
  Sex: Female

DRUGS (1)
  1. RABEFINE [Suspect]
     Active Substance: AMOXICILLIN\METRONIDAZOLE\RABEPRAZOLE
     Indication: PRODUCT USED FOR UNKNOWN INDICATION
     Route: 048
     Dates: start: 201506, end: 201506

REACTIONS (1)
  - Enterocolitis haemorrhagic [Unknown]
